FAERS Safety Report 9126613 (Version 1)
Quarter: 2013Q1

REPORT INFORMATION
  Report Type: Spontaneous
  Country: US (occurrence: US)
  Receive Date: 20130117
  Receipt Date: 20130117
  Transmission Date: 20140127
  Serious: Yes (Hospitalization)
  Sender: FDA-Public Use
  Company Number: US-BAYER-2013-003834

PATIENT
  Age: 33 Year
  Sex: Female

DRUGS (6)
  1. YAZ [Suspect]
     Dosage: UNK
  2. YASMIN [Suspect]
     Dosage: UNK
  3. KEFLEX [Concomitant]
     Dosage: UNK
     Dates: start: 20090626, end: 20090925
  4. MULTIVITAMIN [Concomitant]
     Dosage: UNK
  5. CLARITYN [LORATADINE] [Concomitant]
     Dosage: UNK
  6. ALEVE [Concomitant]
     Indication: PAIN IN EXTREMITY
     Dosage: UNK

REACTIONS (2)
  - Pulmonary embolism [None]
  - Deep vein thrombosis [None]
